FAERS Safety Report 22103460 (Version 1)
Quarter: 2023Q1

REPORT INFORMATION
  Report Type: Spontaneous
  Country: US (occurrence: US)
  Receive Date: 20230316
  Receipt Date: 20230316
  Transmission Date: 20230417
  Serious: Yes (Other)
  Sender: FDA-Public Use
  Company Number: US-BRISTOL-MYERS SQUIBB COMPANY-2023-037673

PATIENT
  Age: 51 Year
  Sex: Male

DRUGS (1)
  1. ELIQUIS [Suspect]
     Active Substance: APIXABAN
     Indication: Deep vein thrombosis
     Route: 048

REACTIONS (7)
  - Aphasia [Unknown]
  - Renal infarct [Unknown]
  - Splenic infarction [Unknown]
  - Aortic thrombosis [Unknown]
  - Peripheral artery thrombosis [Unknown]
  - Treatment noncompliance [Unknown]
  - Prescribed underdose [Unknown]
